FAERS Safety Report 4433985-8 (Version None)
Quarter: 2004Q3

REPORT INFORMATION
  Report Type: 
  Country: None (occurrence: None)
  Receive Date: 20040825
  Receipt Date: 20040809
  Transmission Date: 20050211
  Serious: Yes (Other)
  Sender: FDA-Public Use
  Company Number: USA040875039

PATIENT
  Age: 75 Year
  Sex: Male

DRUGS (2)
  1. CIALIS [Suspect]
     Dosage: 20 MG
     Dates: start: 20040715
  2. CYCLOSPORINE [Concomitant]

REACTIONS (3)
  - ALCOHOL USE [None]
  - LOSS OF CONSCIOUSNESS [None]
  - SYNCOPE [None]
